FAERS Safety Report 7943496-0 (Version None)
Quarter: 2011Q4

REPORT INFORMATION
  Report Type: 
  Country: None (occurrence: None)
  Receive Date: 20111128
  Receipt Date: 20111121
  Transmission Date: 20120403
  Serious: Yes (Other)
  Sender: FDA-Public Use
  Company Number: US-VERTEX PHARMACEUTICALS INC.-AE-2011-002711

PATIENT
  Sex: Male

DRUGS (3)
  1. INCIVEK [Suspect]
     Indication: HEPATITIS C
     Route: 048
     Dates: start: 20111006
  2. PEGASYS [Concomitant]
     Indication: HEPATITIS C
     Route: 058
     Dates: start: 20111006
  3. RIBAVIRIN [Concomitant]
     Indication: HEPATITIS C
     Dates: start: 20111006

REACTIONS (11)
  - RENAL FAILURE [None]
  - DYSPHAGIA [None]
  - EYE PAIN [None]
  - CHEMICAL BURN OF GASTROINTESTINAL TRACT [None]
  - DYSPNOEA [None]
  - COUGH [None]
  - ANORECTAL DISORDER [None]
  - DIZZINESS [None]
  - OROPHARYNGEAL PAIN [None]
  - ANAL HAEMORRHAGE [None]
  - EYE SWELLING [None]
